FAERS Safety Report 6040075-X (Version None)
Quarter: 2009Q1

REPORT INFORMATION
  Report Type: 
  Country: None (occurrence: None)
  Receive Date: 20090116
  Receipt Date: 20071205
  Transmission Date: 20090719
  Serious: No
  Sender: FDA-Public Use
  Company Number: US-BRISTOL-MYERS SQUIBB COMPANY-14005060

PATIENT
  Age: 46 Year
  Sex: Male
  Weight: 94 kg

DRUGS (8)
  1. ABILIFY [Suspect]
     Route: 048
     Dates: start: 20071128
  2. LITHIUM [Concomitant]
  3. LOVASTATIN [Concomitant]
  4. TRAZODONE HCL [Concomitant]
  5. TRIAMTERENE + CYCLOTHIAZIDE [Concomitant]
  6. KLONOPIN [Concomitant]
  7. METOPROLOL TARTRATE [Concomitant]
  8. BENZTROPINE [Concomitant]

REACTIONS (2)
  - NERVOUSNESS [None]
  - VISION BLURRED [None]
